FAERS Safety Report 9228927 (Version 1)
Quarter: 2013Q2

REPORT INFORMATION
  Report Type: Spontaneous
  Country: IT (occurrence: IT)
  Receive Date: 20130412
  Receipt Date: 20130412
  Transmission Date: 20140414
  Serious: Yes (Life-Threatening)
  Sender: FDA-Public Use
  Company Number: PHHY2013IT035354

PATIENT
  Sex: Male

DRUGS (1)
  1. LEVOCETIRIZINE [Suspect]
     Indication: ASTHMA
     Dosage: 5 MG, TOTAL
     Route: 048
     Dates: start: 20130316, end: 20130316

REACTIONS (3)
  - Diplopia [Recovered/Resolved]
  - Road traffic accident [Recovered/Resolved]
  - Asthenia [Recovered/Resolved]
